FAERS Safety Report 12103630 (Version 1)
Quarter: 2016Q1

REPORT INFORMATION
  Report Type: Other
  Country: US (occurrence: US)
  Receive Date: 20160222
  Receipt Date: 20160222
  Transmission Date: 20160526
  Serious: No
  Sender: FDA-Public Use
  Company Number: US-ACORDA-ACO_113238_2015

PATIENT
  Sex: Female

DRUGS (2)
  1. AMPYRA [Suspect]
     Active Substance: DALFAMPRIDINE
     Indication: INSOMNIA
     Dosage: 10 MG, BID
     Route: 048
     Dates: start: 2012
  2. AMPYRA [Suspect]
     Active Substance: DALFAMPRIDINE
     Dosage: 10MG , QD
     Route: 048

REACTIONS (1)
  - Off label use [Unknown]
